FAERS Safety Report 13420097 (Version 2)
Quarter: 2017Q3

REPORT INFORMATION
  Report Type: Spontaneous
  Country: US (occurrence: US)
  Receive Date: 20170407
  Receipt Date: 20170703
  Transmission Date: 20171127
  Serious: No
  Sender: FDA-Public Use
  Company Number: US-JNJFOC-20170322656

PATIENT
  Sex: Male
  Weight: 90.72 kg

DRUGS (1)
  1. STELARA [Suspect]
     Active Substance: USTEKINUMAB
     Indication: PSORIASIS
     Route: 058
     Dates: start: 2015

REACTIONS (6)
  - Therapeutic response decreased [Unknown]
  - Somnolence [Unknown]
  - Fatigue [Unknown]
  - Rhinitis [Unknown]
  - Psoriasis [Unknown]
  - Insomnia [Unknown]
